FAERS Safety Report 4907335-4 (Version None)
Quarter: 2006Q1

REPORT INFORMATION
  Report Type: 
  Country: None (occurrence: None)
  Receive Date: 20060208
  Receipt Date: 20060208
  Transmission Date: 20060701
  Serious: Yes (Death)
  Sender: FDA-Public Use
  Company Number: None

PATIENT
  Sex: Female
  Weight: 53.0709 kg

DRUGS (2)
  1. PSEUDOEPHEDRINE [Suspect]
     Indication: COUGH
     Dosage: PO
     Route: 048
     Dates: start: 20051020, end: 20051030
  2. PSEUDOEPHEDRINE [Suspect]
     Indication: RESPIRATORY TRACT INFECTION
     Dosage: PO
     Route: 048
     Dates: start: 20051020, end: 20051030

REACTIONS (5)
  - ARTERIOSCLEROSIS CORONARY ARTERY [None]
  - BRONCHOPNEUMONIA [None]
  - CEREBRAL ISCHAEMIA [None]
  - HYPOXIC ENCEPHALOPATHY [None]
  - SUBARACHNOID HAEMORRHAGE [None]
